FAERS Safety Report 22642988 (Version 1)
Quarter: 2023Q2

REPORT INFORMATION
  Report Type: Spontaneous
  Country: CA (occurrence: CA)
  Receive Date: 20230627
  Receipt Date: 20230627
  Transmission Date: 20230722
  Serious: No
  Sender: FDA-Public Use
  Company Number: CA-ALKEM LABORATORIES LIMITED-US-ALKEM-2023-05393

PATIENT
  Age: 22 Year
  Sex: Female

DRUGS (11)
  1. METHADONE HYDROCHLORIDE [Suspect]
     Active Substance: METHADONE HYDROCHLORIDE
     Indication: Drug withdrawal syndrome
     Dosage: INITIATED AT 30 MG DAILY, WITH ADDITIONAL DOSES OF 10 MG AVAILABLE EVERY 3 HOURS AS  NEEDED, TO AN I
     Route: 065
  2. METHADONE HYDROCHLORIDE [Suspect]
     Active Substance: METHADONE HYDROCHLORIDE
     Dosage: UNK (TOTAL 60MG, SCHEDULED MMT 30MG, PRN WAS 10, 10, 10MG)
     Route: 065
  3. METHADONE HYDROCHLORIDE [Suspect]
     Active Substance: METHADONE HYDROCHLORIDE
     Dosage: UNK (TOTAL 80MG, SCHEDULED MMT 60MG, PRN WAS 10, 10MG)
     Route: 065
  4. METHADONE HYDROCHLORIDE [Suspect]
     Active Substance: METHADONE HYDROCHLORIDE
     Dosage: UNK (TOTAL 80MG, SCHEDULED MMT 70MG, PRN WAS 10MG)
     Route: 065
  5. METHADONE HYDROCHLORIDE [Suspect]
     Active Substance: METHADONE HYDROCHLORIDE
     Dosage: UNK (TOTAL 100MG, SCHEDULED MMT 70MG, PRN WAS 10, 10,10MG)
     Route: 065
  6. METHADONE HYDROCHLORIDE [Suspect]
     Active Substance: METHADONE HYDROCHLORIDE
     Dosage: UNK (TOTAL 130MG, SCHEDULED MMT 100MG, PRN WAS 10, 10,10MG)
     Route: 065
  7. METHADONE HYDROCHLORIDE [Suspect]
     Active Substance: METHADONE HYDROCHLORIDE
     Dosage: UNK (TOTAL 130MG, SCHEDULED MMT 120MG, PRN WAS 10MG)
     Route: 065
  8. METHADONE HYDROCHLORIDE [Suspect]
     Active Substance: METHADONE HYDROCHLORIDE
     Dosage: 120 MILLIGRAM, QD (DAILY) (DISCHARGED FROM HOSPITAL)
     Route: 065
  9. MORPHINE SULFATE [Suspect]
     Active Substance: MORPHINE SULFATE
     Indication: Drug withdrawal syndrome
     Dosage: UNK
     Route: 048
  10. FENTANYL [Suspect]
     Active Substance: FENTANYL
     Indication: Drug withdrawal syndrome
     Dosage: UNK, (MULTIPLE DAILY INJECTIONS)
     Route: 065
  11. FENTANYL [Suspect]
     Active Substance: FENTANYL
     Dosage: UNK, (DECREASED INJECTIONS THREE TIMES PER WEEK)
     Route: 065

REACTIONS (1)
  - Exposure during pregnancy [Unknown]
